FAERS Safety Report 13375365 (Version 1)
Quarter: 2017Q1

REPORT INFORMATION
  Report Type: Spontaneous
  Country: US (occurrence: US)
  Receive Date: 20170327
  Receipt Date: 20170327
  Transmission Date: 20170429
  Serious: No
  Sender: FDA-Public Use
  Company Number: US-BRISTOL-MYERS SQUIBB COMPANY-BMS-2017-025787

PATIENT
  Sex: Male
  Weight: 47.62 kg

DRUGS (1)
  1. YERVOY [Suspect]
     Active Substance: IPILIMUMAB
     Indication: MALIGNANT MELANOMA
     Dosage: 1050 MG, Q3WK
     Route: 042

REACTIONS (2)
  - Diarrhoea [Unknown]
  - Prescribed overdose [Unknown]
